FAERS Safety Report 11455747 (Version 1)
Quarter: 2015Q3

REPORT INFORMATION
  Report Type: Spontaneous
  Country: US (occurrence: US)
  Receive Date: 20150903
  Receipt Date: 20150903
  Transmission Date: 20151125
  Serious: Yes (Other)
  Sender: FDA-Public Use
  Company Number: US-BAYER-2015-409365

PATIENT
  Sex: Female

DRUGS (1)
  1. BAYER GENUINE ASPIRIN [Suspect]
     Active Substance: ASPIRIN
     Indication: HEADACHE
     Dosage: UNK
     Dates: start: 1968, end: 1970

REACTIONS (4)
  - Drug hypersensitivity [Recovering/Resolving]
  - Pharyngeal oedema [Recovered/Resolved]
  - Anaphylactic shock [Recovered/Resolved]
  - Accidental exposure to product by child [None]

NARRATIVE: CASE EVENT DATE: 1968
